FAERS Safety Report 26086927 (Version 1)
Quarter: 2025Q4

REPORT INFORMATION
  Report Type: Spontaneous
  Country: US (occurrence: None)
  Receive Date: 20251124
  Receipt Date: 20251124
  Transmission Date: 20260117
  Serious: Yes (Life-Threatening)
  Sender: FDA-CTU
  Company Number: None

PATIENT
  Age: 47 Year
  Sex: Female
  Weight: 96.75 kg

DRUGS (6)
  1. MECLIZINE 25MG [Suspect]
     Active Substance: MECLIZINE HYDROCHLORIDE
     Indication: Motion sickness
     Dosage: 8 TABLET(S) DAILY ORAL
     Route: 048
     Dates: start: 20251123, end: 20251123
  2. METHADONE [Suspect]
     Active Substance: METHADONE HYDROCHLORIDE
  3. Loratadine 10mg 1x day [Concomitant]
  4. Amlodopine 5/Benazepril 40mg 1x day [Concomitant]
  5. Methadone 190mg 1x day [Concomitant]
  6. Ibuprofen 600mg 2x day [Concomitant]

REACTIONS (2)
  - Physical product label issue [None]
  - Contraindicated product administered [None]

NARRATIVE: CASE EVENT DATE: 20251123
